FAERS Safety Report 10495824 (Version 1)
Quarter: 2014Q4

REPORT INFORMATION
  Report Type: Spontaneous
  Country: GB (occurrence: GB)
  Receive Date: 20141003
  Receipt Date: 20141003
  Transmission Date: 20150528
  Serious: Yes (Other)
  Sender: FDA-Public Use
  Company Number: GB-ACTAVIS-2014-21918

PATIENT
  Age: 14 Year
  Sex: Female

DRUGS (2)
  1. COCODAMOL [Suspect]
     Active Substance: ACETAMINOPHEN\CODEINE PHOSPHATE
     Indication: PAIN
     Dosage: UNK
     Route: 065
  2. PARACETAMOL  (UNKNOWN) [Suspect]
     Active Substance: ACETAMINOPHEN
     Indication: PAIN
     Dosage: UNK, 2-3 PACKETS PER DAY
     Route: 065

REACTIONS (4)
  - Drug dependence [Unknown]
  - Drug abuse [Unknown]
  - Social avoidant behaviour [Unknown]
  - Overdose [Unknown]
